FAERS Safety Report 13630239 (Version 1)
Quarter: 2017Q2

REPORT INFORMATION
  Report Type: Spontaneous
  Country: ES (occurrence: ES)
  Receive Date: 20170608
  Receipt Date: 20170608
  Transmission Date: 20170830
  Serious: Yes (Hospitalization, Other)
  Sender: FDA-Public Use
  Company Number: ES-MYLANLABS-2017M1034498

PATIENT

DRUGS (3)
  1. DESMOPRESSIN [Suspect]
     Active Substance: DESMOPRESSIN
     Indication: PRODUCT USED FOR UNKNOWN INDICATION
     Route: 065
  2. ATOSIBAN [Suspect]
     Active Substance: ATOSIBAN
     Indication: PRODUCT USED FOR UNKNOWN INDICATION
     Dosage: FIRST CYCLE-ON DAY 0 OF ADMISSION; SECOND CYCLE- AT 6 DAYS; THIRD CYCLE-AT 26 DAYS
     Route: 065
  3. BETA LONG [Concomitant]
     Indication: MATERNAL THERAPY TO ENHANCE FOETAL LUNG MATURITY
     Dosage: FOR TWO DAYS AND A SINGLE BOOSTER DOSE ONE MONTH AFTER ADMISSION
     Route: 065

REACTIONS (3)
  - Osmotic demyelination syndrome [Recovered/Resolved]
  - Hyponatraemia [Recovered/Resolved]
  - Maternal exposure during pregnancy [Recovered/Resolved]
